FAERS Safety Report 8393776-2 (Version None)
Quarter: 2012Q2

REPORT INFORMATION
  Report Type: 
  Country: None (occurrence: None)
  Receive Date: 20120530
  Receipt Date: 20120521
  Transmission Date: 20120825
  Serious: No
  Sender: FDA-Public Use
  Company Number: US-BIOGENIDEC-2012BI017772

PATIENT
  Age: 59 Year
  Sex: Female

DRUGS (5)
  1. AVONEX [Suspect]
     Indication: MULTIPLE SCLEROSIS
     Route: 030
     Dates: start: 19961001, end: 20040301
  2. TIZANIDINE HCL [Concomitant]
     Dates: start: 20120513
  3. TIZANIDINE HCL [Concomitant]
     Indication: MUSCLE SPASTICITY
     Route: 048
  4. BACLOFEN [Concomitant]
     Indication: MUSCLE SPASTICITY
     Route: 048
  5. AVONEX [Suspect]
     Route: 030

REACTIONS (4)
  - MULTIPLE SCLEROSIS RELAPSE [None]
  - FALL [None]
  - BACK PAIN [None]
  - HYPERTHYROIDISM [None]
